FAERS Safety Report 4748348-5 (Version None)
Quarter: 2005Q3

REPORT INFORMATION
  Report Type: 
  Country: None (occurrence: None)
  Receive Date: 20050818
  Receipt Date: 20050525
  Transmission Date: 20060218
  Serious: Yes (Hospitalization)
  Sender: FDA-Public Use
  Company Number: US-MERCK-0505USA03116

PATIENT
  Age: 48 Year
  Sex: Female
  Weight: 68 kg

DRUGS (4)
  1. VIOXX [Suspect]
     Indication: ARTHRITIS
     Route: 048
     Dates: start: 19990101
  2. VIOXX [Suspect]
     Route: 048
     Dates: end: 20040930
  3. ACIPHEX [Concomitant]
     Indication: DYSPEPSIA
     Route: 065
  4. AMBIEN [Concomitant]
     Indication: SLEEP DISORDER
     Route: 065

REACTIONS (4)
  - DEPRESSION [None]
  - HAEMORRHAGE [None]
  - POST PROCEDURAL HAEMORRHAGE [None]
  - TRANSIENT ISCHAEMIC ATTACK [None]
